FAERS Safety Report 18165697 (Version 1)
Quarter: 2020Q3

REPORT INFORMATION
  Report Type: Other
  Country: ES (occurrence: ES)
  Receive Date: 20200819
  Receipt Date: 20200819
  Transmission Date: 20201103
  Serious: Yes (Other)
  Sender: FDA-Public Use
  Company Number: ES-DEXPHARM-20200701

PATIENT

DRUGS (2)
  1. LEVETIRACETAM. [Suspect]
     Active Substance: LEVETIRACETAM
  2. CARBAMAZEPINE. [Interacting]
     Active Substance: CARBAMAZEPINE

REACTIONS (2)
  - Drug interaction [Unknown]
  - Skull malformation [Unknown]
